FAERS Safety Report 13636859 (Version 1)
Quarter: 2017Q2

REPORT INFORMATION
  Report Type: Spontaneous
  Country: US (occurrence: US)
  Receive Date: 20170531
  Receipt Date: 20170531
  Transmission Date: 20170830
  Serious: No
  Sender: FDA-Public Use
  Company Number: US-ASTELLAS-751670

PATIENT
  Age: 46 Year
  Sex: Male

DRUGS (1)
  1. TARCEVA [Suspect]
     Active Substance: ERLOTINIB HYDROCHLORIDE
     Indication: PRODUCT USED FOR UNKNOWN INDICATION
     Route: 048

REACTIONS (6)
  - Nausea [Unknown]
  - Asthenia [Unknown]
  - Body temperature increased [Unknown]
  - Decreased appetite [Unknown]
  - Acne [Unknown]
  - Diarrhoea [Unknown]

NARRATIVE: CASE EVENT DATE: 20101224
